FAERS Safety Report 9052061 (Version 2)
Quarter: 2013Q1

REPORT INFORMATION
  Report Type: Report from Study
  Country: DE (occurrence: DE)
  Receive Date: 20130207
  Receipt Date: 20130219
  Transmission Date: 20140127
  Serious: Yes (Hospitalization)
  Sender: FDA-Public Use
  Company Number: DE-JNJFOC-20130116306

PATIENT
  Age: 77 None
  Sex: Male
  Weight: 110 kg

DRUGS (5)
  1. STELARA [Suspect]
     Indication: PSORIASIS
     Route: 058
     Dates: start: 20090415
  2. DAFIRO [Concomitant]
  3. BISOPROLOL [Concomitant]
  4. TORASEMID [Concomitant]
  5. ASS [Concomitant]

REACTIONS (1)
  - Hypertension [Not Recovered/Not Resolved]
